FAERS Safety Report 13415024 (Version 3)
Quarter: 2017Q2

REPORT INFORMATION
  Report Type: Spontaneous
  Country: JP (occurrence: JP)
  Receive Date: 20170406
  Receipt Date: 20170628
  Transmission Date: 20170830
  Serious: Yes (Other)
  Sender: FDA-Public Use
  Company Number: JP-PFIZER INC-2017144585

PATIENT
  Age: 72 Year
  Sex: Female

DRUGS (16)
  1. KALIMATE [Concomitant]
     Active Substance: CALCIUM POLYSTYRENE SULFONATE
     Dosage: 5 G, 2X/DAY
     Route: 048
     Dates: start: 20160219
  2. LOXONIN [Concomitant]
     Active Substance: LOXOPROFEN SODIUM
     Dosage: UNK
     Dates: start: 20170327
  3. SUMILU [Concomitant]
     Active Substance: FELBINAC
     Dosage: UNK
     Dates: start: 20170327
  4. EPERISONE [Concomitant]
     Active Substance: EPERISONE
     Dosage: UNK
     Route: 048
     Dates: start: 20170327
  5. ADALAT [Concomitant]
     Active Substance: NIFEDIPINE
     Dosage: 40 MG, 1X/DAY
     Route: 048
     Dates: start: 20161014
  6. ARTIST [Concomitant]
     Active Substance: CARVEDILOL
     Dosage: 1 DF, DAILY
  7. REBAMIPIDE [Concomitant]
     Active Substance: REBAMIPIDE
     Dosage: UNK
     Route: 048
     Dates: start: 20170327
  8. AZILVA [Concomitant]
     Active Substance: AZILSARTAN KAMEDOXOMIL
     Dosage: 20 MG, 1X/DAY
     Route: 048
     Dates: start: 20161014
  9. TRAZENTA [Concomitant]
     Active Substance: LINAGLIPTIN
     Dosage: 5 MG, 1X/DAY
     Route: 048
     Dates: start: 20130520
  10. CRESTOR [Concomitant]
     Active Substance: ROSUVASTATIN CALCIUM
     Dosage: 5 MG, 1X/DAY
     Route: 048
     Dates: start: 20110406
  11. KREMEZIN [Concomitant]
     Active Substance: ACTIVATED CHARCOAL
     Dosage: 2 G, 2X/DAY
     Route: 048
     Dates: start: 20161014
  12. NITROPEN [Concomitant]
     Active Substance: NITROGLYCERIN
     Dosage: 0.3 MG, AS NEEDED
     Route: 060
     Dates: start: 20071219
  13. LYRICA [Suspect]
     Active Substance: PREGABALIN
     Indication: PAIN
     Dosage: UNK
     Route: 048
     Dates: start: 20170327, end: 20170328
  14. LOXOPROFEN SODIUM [Concomitant]
     Active Substance: LOXOPROFEN SODIUM
     Dosage: UNK
     Dates: start: 20170327
  15. ARTIST [Concomitant]
     Active Substance: CARVEDILOL
     Dosage: 10 MG, 2X/DAY
     Route: 048
     Dates: start: 20070530
  16. ARTIST [Concomitant]
     Active Substance: CARVEDILOL
     Dosage: 1 DF, 2X/DAY

REACTIONS (1)
  - Angina pectoris [Unknown]

NARRATIVE: CASE EVENT DATE: 20170327
